FAERS Safety Report 9321596 (Version 1)
Quarter: 2013Q2

REPORT INFORMATION
  Report Type: Spontaneous
  Country: CA (occurrence: CA)
  Receive Date: 20130531
  Receipt Date: 20130531
  Transmission Date: 20140414
  Serious: Yes (Other)
  Sender: FDA-Public Use
  Company Number: CA-TEVA-409155USA

PATIENT
  Age: 49 Year
  Sex: Female
  Weight: 78 kg

DRUGS (5)
  1. CARBOPLATIN [Suspect]
     Route: 065
  2. BENADRYL [Concomitant]
  3. DEXAMETHASONE [Concomitant]
  4. PACLITAXEL INJECTION [Concomitant]
     Dosage: LIQUID INTRAVENOUS
     Route: 065
  5. RANITIDINE [Concomitant]

REACTIONS (4)
  - Chest pain [Recovered/Resolved]
  - Dysgeusia [Recovered/Resolved]
  - Dyspnoea [Recovered/Resolved]
  - Flushing [Recovered/Resolved]
